FAERS Safety Report 25374692 (Version 2)
Quarter: 2025Q2

REPORT INFORMATION
  Report Type: Report from Study
  Country: US (occurrence: US)
  Receive Date: 20250529
  Receipt Date: 20250627
  Transmission Date: 20250716
  Serious: Yes (Death)
  Sender: DAIICHI
  Company Number: US-DSJP-DS-2025-127018-US

PATIENT
  Age: 63 Year
  Sex: Female

DRUGS (3)
  1. ENHERTU [Suspect]
     Active Substance: FAM-TRASTUZUMAB DERUXTECAN-NXKI
     Indication: Oesophageal carcinoma
     Dosage: 600 MG, ONCE EVERY 3 WK
     Route: 042
     Dates: start: 20250115
  2. ENHERTU [Suspect]
     Active Substance: FAM-TRASTUZUMAB DERUXTECAN-NXKI
     Dosage: 419.32 MG, ONCE EVERY 3 WK
     Route: 042
     Dates: start: 20250206, end: 20250206
  3. ENHERTU [Suspect]
     Active Substance: FAM-TRASTUZUMAB DERUXTECAN-NXKI
     Dosage: 100 MG, ONCE EVERY 3 WK
     Route: 042

REACTIONS (2)
  - Weight increased [Fatal]
  - Weight decreased [Not Recovered/Not Resolved]

NARRATIVE: CASE EVENT DATE: 20250224
